FAERS Safety Report 21915662 (Version 1)
Quarter: 2023Q1

REPORT INFORMATION
  Report Type: Spontaneous
  Country: US (occurrence: US)
  Receive Date: 20230126
  Receipt Date: 20230126
  Transmission Date: 20230418
  Serious: Yes (Hospitalization, Other)
  Sender: FDA-Public Use
  Company Number: US-GLAXOSMITHKLINE-USCH2023GSK003391

PATIENT

DRUGS (1)
  1. IBUPROFEN [Suspect]
     Active Substance: IBUPROFEN
     Indication: Product used for unknown indication
     Dosage: 400 MG (120G OR 1,666MG/KG)

REACTIONS (9)
  - Hyperkalaemia [Unknown]
  - Renal failure [Unknown]
  - Lactic acidosis [Recovering/Resolving]
  - Acute respiratory distress syndrome [Recovering/Resolving]
  - Leukopenia [Unknown]
  - Toxicity to various agents [Unknown]
  - Hypocalcaemia [Unknown]
  - Metabolic acidosis [Unknown]
  - Tachycardia [Unknown]
